FAERS Safety Report 6156942-2 (Version None)
Quarter: 2009Q2

REPORT INFORMATION
  Report Type: 
  Country: None (occurrence: None)
  Receive Date: 20090416
  Receipt Date: 20090410
  Transmission Date: 20091009
  Serious: Yes (Life-Threatening)
  Sender: FDA-Public Use
  Company Number: B0565106A

PATIENT
  Sex: Female
  Weight: 38 kg

DRUGS (4)
  1. ARIXTRA [Suspect]
     Indication: THROMBOSIS PROPHYLAXIS
     Dosage: 1.5MG PER DAY
     Route: 058
     Dates: start: 20081004, end: 20081005
  2. GASTER D [Concomitant]
     Dosage: 20MG PER DAY
     Route: 048
  3. MICARDIS [Concomitant]
     Dosage: 20MG PER DAY
     Route: 048
     Dates: end: 20081005
  4. AMLODIN [Concomitant]
     Dosage: 2.5MG PER DAY
     Route: 048
     Dates: end: 20081005

REACTIONS (5)
  - ANAEMIA [None]
  - BLOOD PRESSURE DECREASED [None]
  - HAEMATOCRIT DECREASED [None]
  - HAEMOGLOBIN DECREASED [None]
  - PALLOR [None]
